FAERS Safety Report 8959072 (Version 2)
Quarter: 2013Q1

REPORT INFORMATION
  Report Type: Spontaneous
  Country: JP (occurrence: JP)
  Receive Date: 20121212
  Receipt Date: 20130107
  Transmission Date: 20140127
  Serious: Yes (Death, Hospitalization, Other)
  Sender: FDA-Public Use
  Company Number: JP-ROCHE-1159287

PATIENT
  Age: 63 Year
  Sex: Female
  Weight: 36 kg

DRUGS (2)
  1. AVASTIN [Suspect]
     Indication: BREAST CANCER METASTATIC
     Route: 041
     Dates: start: 20121030, end: 20121030
  2. PACLITAXEL [Concomitant]
     Indication: BREAST CANCER METASTATIC
     Route: 041
     Dates: start: 20121030, end: 20121030

REACTIONS (3)
  - Oesophageal varices haemorrhage [Recovered/Resolved]
  - Altered state of consciousness [Unknown]
  - Disease progression [Fatal]
